FAERS Safety Report 8334742-2 (Version None)
Quarter: 2012Q2

REPORT INFORMATION
  Report Type: 
  Country: None (occurrence: None)
  Receive Date: 20120503
  Receipt Date: 20100209
  Transmission Date: 20120825
  Serious: No
  Sender: FDA-Public Use
  Company Number: US-TEVA-2010000804

PATIENT
  Sex: Male
  Weight: 74.91 kg

DRUGS (4)
  1. XANAX [Concomitant]
     Indication: ANXIETY
     Dates: start: 20080101
  2. NUVIGIL [Suspect]
     Indication: DEPRESSION
     Dosage: 50 MILLIGRAM;
     Route: 048
     Dates: start: 20100209, end: 20100209
  3. SEROQUEL [Concomitant]
     Dosage: 12.5 MILLIGRAM;
     Dates: start: 20080101
  4. LEXAPRO [Concomitant]
     Indication: DEPRESSION
     Dosage: 5 MILLIGRAM;
     Dates: start: 20090101

REACTIONS (2)
  - HEART RATE INCREASED [None]
  - ANXIETY [None]
